FAERS Safety Report 7197742-4 (Version None)
Quarter: 2010Q4

REPORT INFORMATION
  Report Type: 
  Country: None (occurrence: None)
  Receive Date: 20101213
  Receipt Date: 20101202
  Transmission Date: 20110411
  Serious: Yes (Hospitalization)
  Sender: FDA-Public Use
  Company Number: 2010US004924

PATIENT
  Age: 55 Year
  Sex: Male

DRUGS (9)
  1. PROGRAF [Suspect]
     Indication: LIVER TRANSPLANT
     Dosage: 3 MG, BID, ORAL
     Route: 048
     Dates: start: 20090624
  2. URSODIOL [Concomitant]
  3. AMLODIPINE [Concomitant]
  4. FUROSEMIDE [Concomitant]
  5. MAG-OX (MAGNESIUM OXIDE) [Concomitant]
  6. CALCIUM (CALCIUM) [Concomitant]
  7. OMEPRAZOLE [Concomitant]
  8. FAMOTIDINE [Concomitant]
  9. FISH OIL (FISH OIL) [Concomitant]

REACTIONS (2)
  - FLUID RETENTION [None]
  - HERNIA [None]
